FAERS Safety Report 23055741 (Version 2)
Quarter: 2024Q1

REPORT INFORMATION
  Report Type: Spontaneous
  Country: DE (occurrence: DE)
  Receive Date: 20231011
  Receipt Date: 20240201
  Transmission Date: 20240410
  Serious: Yes (Hospitalization)
  Sender: FDA-Public Use
  Company Number: DE-DCGMA-23201315

PATIENT
  Age: 90 Year
  Sex: Male
  Weight: 84 kg

DRUGS (3)
  1. PREGABALIN [Suspect]
     Active Substance: PREGABALIN
     Indication: Neuralgia
     Dosage: 75 MILLIGRAM, UNK
     Route: 048
     Dates: start: 20230515, end: 20230522
  2. ASPIRIN [Concomitant]
     Active Substance: ASPIRIN
     Indication: Product used for unknown indication
     Dosage: 100 MILLIGRAM
     Route: 048
  3. BRIVUDINE [Concomitant]
     Active Substance: BRIVUDINE
     Indication: Herpes zoster
     Dosage: 100 MILLIGRAM
     Route: 048

REACTIONS (5)
  - Hyperkinesia [Recovered/Resolved]
  - Delirium [Recovered/Resolved]
  - Dystonia [Recovered/Resolved]
  - Disturbance in attention [Recovered/Resolved]
  - Disturbance in attention [Recovered/Resolved]

NARRATIVE: CASE EVENT DATE: 20230515
